FAERS Safety Report 9372547 (Version 1)
Quarter: 2013Q2

REPORT INFORMATION
  Report Type: Spontaneous
  Country: US (occurrence: None)
  Receive Date: 20130605
  Receipt Date: 20130605
  Transmission Date: 20140414
  Serious: Yes (Other)
  Sender: FDA-Public Use
  Company Number: 2013036313

PATIENT
  Sex: Female
  Weight: 90.72 kg

DRUGS (27)
  1. ZEMAIRA (ALPHA-1 PROTEINASE INHIBITOR (HUMAN)) [Suspect]
     Indication: ALPHA-1 ANTI-TRYPSIN DEFICIENCY
     Dosage: 60 MG/KG 1X/WEEK, 933 MCG/VIAL; MAX. RATE 0.8 ML/KG/MIN (7.3 ML/MIN) INTRAVENOUS (NOT OTHERWISE SPECIFIED))
     Route: 042
  2. LEVAQUIN (LEVOFLOXACIN) [Concomitant]
  3. NEXIUM (ESOMEPRAZOLE MAGNESIUM) [Concomitant]
  4. ALBUTEROL (SALBUTAMOL) [Concomitant]
  5. VITAMINS [Concomitant]
  6. FISH OIL (FISH OIL) [Concomitant]
  7. VITAMIN B12 (CYABOCOBALAMIN) [Concomitant]
  8. VITAMIN D3 (COLECALCIFEROL) [Concomitant]
  9. DIPHENHYDRAMINE (DIPHENHYDRAMINE) [Concomitant]
  10. LIDOCAINE (LIDOCAINE) [Concomitant]
  11. SODIUM CHLORIDE [Concomitant]
  12. EPIPEN (EPINEPHRINE) [Concomitant]
  13. CYMBALTA (DULOXETINE HYDROCHLORDE) [Concomitant]
  14. SINGULAIR [Concomitant]
  15. COZAAR (LOSARTAN POTASSIUM) [Concomitant]
  16. XYZAL [Concomitant]
  17. BACTROBAN (MUPIROCIN) [Concomitant]
  18. SYNDTROID (LEVOTHYROXINE SODIUM [Concomitant]
  19. PULMICORT (BUDESONIDE) [Concomitant]
  20. CRESTOR (ROSUVASTATIN) [Concomitant]
  21. BENZONATATE (BENZONATATE) [Concomitant]
  22. NYSTATIN (NYSTATIN) [Concomitant]
  23. THERAGRAN M (THERAGRAN-M) [Concomitant]
  24. MUCINEX (GUAIFENESIN) [Concomitant]
  25. ACIDOPHILUS PROBIOTIC (LACTOBACILLUS ACDOPHILUS) [Concomitant]
  26. GELINQUE (ALL OTHER THERAPEUTIC PRODUCTS) [Concomitant]
  27. ALVESCO (CICLESONIDE) [Concomitant]

REACTIONS (3)
  - Bronchitis [None]
  - Upper respiratory tract infection [None]
  - Candida infection [None]
